FAERS Safety Report 5451566-4 (Version None)
Quarter: 2007Q3

REPORT INFORMATION
  Report Type: 
  Country: None (occurrence: None)
  Receive Date: 20070913
  Receipt Date: 20070911
  Transmission Date: 20080115
  Serious: Yes (Other)
  Sender: FDA-Public Use
  Company Number: GR-ROXANE LABORATORIES, INC-2007-DE-05271GD

PATIENT
  Age: 37 Year
  Sex: Male

DRUGS (8)
  1. TENECTEPLASE [Suspect]
     Indication: ACUTE MYOCARDIAL INFARCTION
     Route: 042
  2. COCAINE [Suspect]
     Route: 045
  3. ASPIRIN [Concomitant]
     Indication: ACUTE MYOCARDIAL INFARCTION
  4. HEPARIN [Concomitant]
     Indication: ACUTE MYOCARDIAL INFARCTION
     Route: 042
  5. PETHIDINE [Concomitant]
     Indication: CHEST PAIN
  6. DIAZEPAM [Concomitant]
     Indication: ACUTE MYOCARDIAL INFARCTION
  7. ATORVASTATIN CALCIUM [Concomitant]
     Indication: ACUTE MYOCARDIAL INFARCTION
  8. LISINOPRIL [Concomitant]
     Indication: ACUTE MYOCARDIAL INFARCTION

REACTIONS (1)
  - VENTRICULAR FIBRILLATION [None]
